FAERS Safety Report 14847343 (Version 1)
Quarter: 2018Q2

REPORT INFORMATION
  Report Type: Spontaneous
  Country: CN (occurrence: CN)
  Receive Date: 20180504
  Receipt Date: 20180504
  Transmission Date: 20180711
  Serious: Yes (Hospitalization)
  Sender: FDA-Public Use
  Company Number: CN-ASTRAZENECA-2018SE45318

PATIENT
  Age: 81 Year
  Sex: Female

DRUGS (9)
  1. VITAMIN B NOS [Concomitant]
     Active Substance: VITAMIN B
  2. VITAMINS C [Concomitant]
  3. FORXIGA [Suspect]
     Active Substance: DAPAGLIFLOZIN
     Indication: TYPE 2 DIABETES MELLITUS
     Route: 048
  4. INSULIN INJECTION [Concomitant]
     Active Substance: INSULIN NOS
  5. BISOPROLOL FUMARATE. [Concomitant]
     Active Substance: BISOPROLOL FUMARATE
  6. GLUCOBAY [Concomitant]
     Active Substance: ACARBOSE
  7. FORXIGA [Suspect]
     Active Substance: DAPAGLIFLOZIN
     Indication: TYPE 2 DIABETES MELLITUS
     Route: 048
  8. COENZYME Q10 [Concomitant]
     Active Substance: UBIDECARENONE
  9. CALCIUM DOBESILATE [Concomitant]
     Active Substance: CALCIUM DOBESILATE

REACTIONS (6)
  - Asthenia [Not Recovered/Not Resolved]
  - Glucose urine present [Unknown]
  - Coronary artery stenosis [Not Recovered/Not Resolved]
  - Cardiac disorder [Not Recovered/Not Resolved]
  - Pallor [Not Recovered/Not Resolved]
  - Arteriosclerosis coronary artery [Not Recovered/Not Resolved]

NARRATIVE: CASE EVENT DATE: 2015
